FAERS Safety Report 8382826-5 (Version None)
Quarter: 2012Q2

REPORT INFORMATION
  Report Type: 
  Country: None (occurrence: None)
  Receive Date: 20120524
  Receipt Date: 20120516
  Transmission Date: 20120825
  Serious: Yes (Life-Threatening, Hospitalization)
  Sender: FDA-Public Use
  Company Number: PL-JNJFOC-20120313927

PATIENT
  Sex: Male
  Weight: 69 kg

DRUGS (5)
  1. ABIRATERONE ACETATE [Suspect]
     Indication: PROSTATE CANCER METASTATIC
     Route: 048
     Dates: start: 20120130
  2. GOSERELIN [Concomitant]
     Indication: HORMONE THERAPY
     Route: 065
     Dates: start: 20090801
  3. ABIRATERONE ACETATE [Suspect]
     Route: 048
  4. PREDNISONE [Suspect]
     Indication: PROSTATE CANCER METASTATIC
     Route: 048
     Dates: start: 20120130
  5. DOCETAXEL [Concomitant]
     Indication: PROSTATE CANCER METASTATIC
     Route: 065
     Dates: start: 20111201

REACTIONS (1)
  - SUPRAVENTRICULAR TACHYCARDIA [None]
